FAERS Safety Report 8213197-2 (Version None)
Quarter: 2012Q1

REPORT INFORMATION
  Report Type: 
  Country: None (occurrence: None)
  Receive Date: 20120315
  Receipt Date: 20120309
  Transmission Date: 20120608
  Serious: Yes (Other)
  Sender: FDA-Public Use
  Company Number: US-ABBOTT-10P-163-0693485-00

PATIENT
  Sex: Female
  Weight: 71.732 kg

DRUGS (19)
  1. SERTRALINE HYDROCHLORIDE [Concomitant]
     Indication: DEPRESSION
  2. SIMVASTATIN [Concomitant]
     Indication: BLOOD CHOLESTEROL INCREASED
  3. MAGNESIUM [Concomitant]
     Indication: MINERAL SUPPLEMENTATION
  4. LEVOTHYROXINE SODIUM [Concomitant]
     Indication: HYPOTHYROIDISM
  5. PROVENTIL [Concomitant]
     Indication: ASTHMA
  6. FOLIC ACID [Concomitant]
     Indication: VITAMIN SUPPLEMENTATION
  7. GABAPENTIN [Concomitant]
     Indication: NERVE INJURY
  8. BACLOFEN [Concomitant]
     Indication: PAIN
  9. FOSAMAX [Concomitant]
     Indication: OSTEOPOROSIS
     Dates: start: 20060101
  10. HUMIRA [Suspect]
     Indication: RHEUMATOID ARTHRITIS
     Route: 058
     Dates: start: 20100702, end: 20101020
  11. ENBREL [Concomitant]
     Indication: RHEUMATOID ARTHRITIS
     Dates: start: 20101020
  12. BACLOFEN [Concomitant]
     Indication: MYOSITIS
  13. KLOR-CON [Concomitant]
     Indication: MINERAL SUPPLEMENTATION
  14. PILOCARPINE [Concomitant]
     Indication: DRY MOUTH
  15. HYDROCODEINE [Concomitant]
     Indication: PAIN
  16. SPIRONOLACTONE [Concomitant]
     Indication: SWELLING
  17. DILAUDID [Concomitant]
     Indication: BACK INJURY
     Dates: start: 20000101
  18. FUROSEMIDE [Concomitant]
     Indication: SWELLING
  19. ADVAIR DISKUS 100/50 [Concomitant]
     Indication: ASTHMA

REACTIONS (5)
  - MULTIPLE SCLEROSIS [None]
  - ABDOMINAL DISCOMFORT [None]
  - RHEUMATOID ARTHRITIS [None]
  - DRUG INEFFECTIVE [None]
  - NAUSEA [None]
